FAERS Safety Report 8593214-0 (Version None)
Quarter: 2012Q3

REPORT INFORMATION
  Report Type: 
  Country: None (occurrence: None)
  Receive Date: 20120814
  Receipt Date: 20080609
  Transmission Date: 20120928
  Serious: Yes (Other)
  Sender: FDA-Public Use
  Company Number: CO-PFIZER INC-2012192588

PATIENT
  Age: 60 Year
  Sex: Female

DRUGS (9)
  1. CEFALEXIN [Concomitant]
     Dosage: 500 MG, 4X/DAY
  2. INSULIN INSULATARD NPH NORDISK [Concomitant]
     Dosage: 39 IU, 1X/DAY
  3. LOSARTAN [Concomitant]
     Dosage: 50 MG, 1X/DAY
  4. INSULIN INSULATARD NPH NORDISK [Concomitant]
     Dosage: 20 IU, 2X/DAY
  5. NORVASC [Suspect]
     Indication: HYPERTENSION
     Dosage: 5 MG, 1X/DAY
  6. ENALAPRIL MALEATE [Suspect]
     Dosage: UNK
  7. ACETYLSALICYLIC ACID [Concomitant]
     Dosage: 100 MG, 1X/DAY
  8. LOSARTAN [Concomitant]
     Dosage: 50 MG, 2X/DAY
  9. LIPITOR [Suspect]
     Indication: DYSLIPIDAEMIA
     Dosage: 10 MG, 1X/DAY

REACTIONS (6)
  - DRUG INTOLERANCE [None]
  - MALAISE [None]
  - HYPERTENSIVE EMERGENCY [None]
  - GLYCOSURIA [None]
  - EXERCISE LACK OF [None]
  - TREMOR [None]
